FAERS Safety Report 15768855 (Version 1)
Quarter: 2018Q4

REPORT INFORMATION
  Report Type: Spontaneous
  Country: US (occurrence: US)
  Receive Date: 20181228
  Receipt Date: 20181228
  Transmission Date: 20190205
  Serious: No
  Sender: FDA-Public Use
  Company Number: US-JNJFOC-20181141158

PATIENT
  Age: 68 Year
  Sex: Male
  Weight: 110 kg

DRUGS (7)
  1. XANAX [Concomitant]
     Active Substance: ALPRAZOLAM
     Route: 048
  2. ADVIL [Concomitant]
     Active Substance: IBUPROFEN
     Route: 065
     Dates: start: 20180220
  3. IMBRUVICA [Suspect]
     Active Substance: IBRUTINIB
     Indication: CHRONIC LYMPHOCYTIC LEUKAEMIA
     Dosage: 280 MG, QD
     Route: 048
     Dates: start: 20171017
  4. ATROVENT [Concomitant]
     Active Substance: IPRATROPIUM BROMIDE
     Dates: start: 20180220
  5. PRINIVIL [Concomitant]
     Active Substance: LISINOPRIL
     Route: 048
  6. PRAVACHOL [Concomitant]
     Active Substance: PRAVASTATIN SODIUM
     Dates: start: 20180122
  7. NORVASC [Concomitant]
     Active Substance: AMLODIPINE BESYLATE
     Route: 048

REACTIONS (21)
  - Parkinsonism [Unknown]
  - Anxiety [Unknown]
  - Gastritis [Unknown]
  - Pain [Recovering/Resolving]
  - Constipation [Unknown]
  - White blood cell count increased [Unknown]
  - Localised infection [Unknown]
  - Hypogonadism male [Unknown]
  - Dysgeusia [Unknown]
  - Rash [Unknown]
  - Hypertension [Unknown]
  - Haemoglobin decreased [Unknown]
  - Product use issue [Unknown]
  - Blood glucose increased [Unknown]
  - Arthralgia [Unknown]
  - Off label use [Unknown]
  - Depression [Unknown]
  - Nausea [Unknown]
  - Fatigue [Unknown]
  - Seasonal allergy [Unknown]
  - Insomnia [Unknown]

NARRATIVE: CASE EVENT DATE: 20171017
